FAERS Safety Report 11852322 (Version 1)
Quarter: 2015Q4

REPORT INFORMATION
  Report Type: Spontaneous
  Country: FR (occurrence: FR)
  Receive Date: 20151218
  Receipt Date: 20151218
  Transmission Date: 20160305
  Serious: Yes (Other)
  Sender: FDA-Public Use
  Company Number: FR-ACTAVIS-2015-13712

PATIENT
  Age: 55 Year
  Sex: Female

DRUGS (2)
  1. ACITRETIN (UNKNOWN) [Suspect]
     Active Substance: ACITRETIN
     Indication: KERATOSIS FOLLICULAR
     Dosage: UNK
     Route: 048
  2. ADAPALENE (AMALLC) [Suspect]
     Active Substance: ADAPALENE
     Indication: KERATOSIS FOLLICULAR
     Dosage: 0.1 % CREAM - A TOTAL OF 15 TUBES OF 15 G
     Route: 061
     Dates: start: 201201, end: 201209

REACTIONS (1)
  - Hepatitis [Recovered/Resolved]

NARRATIVE: CASE EVENT DATE: 20110301
